FAERS Safety Report 7691831-3 (Version None)
Quarter: 2011Q3

REPORT INFORMATION
  Report Type: 
  Country: None (occurrence: None)
  Receive Date: 20110818
  Receipt Date: 20110817
  Transmission Date: 20111222
  Serious: Yes (Other)
  Sender: FDA-Public Use
  Company Number: GB-TEVA-296894ISR

PATIENT
  Sex: Male

DRUGS (3)
  1. LISINOPRIL [Suspect]
  2. ABILIFY [Suspect]
     Dosage: 20 MILLIGRAM;
  3. DOXAZOSIN MESYLATE [Suspect]

REACTIONS (2)
  - DRUG INTERACTION [None]
  - HAEMODIALYSIS [None]
